FAERS Safety Report 6429858-1 (Version None)
Quarter: 2009Q4

REPORT INFORMATION
  Report Type: 
  Country: None (occurrence: None)
  Receive Date: 20091104
  Receipt Date: 20091104
  Transmission Date: 20100525
  Serious: Yes (Hospitalization)
  Sender: FDA-Public Use
  Company Number: None

PATIENT
  Age: 79 Year
  Sex: Male
  Weight: 71.1 kg

DRUGS (1)
  1. PHENYTOIN [Suspect]
     Indication: CONVULSION
     Dosage: 200 MG BID PO
     Route: 048
     Dates: start: 20090519, end: 20090624

REACTIONS (3)
  - AGITATION [None]
  - CONFUSIONAL STATE [None]
  - MENTAL STATUS CHANGES [None]
